FAERS Safety Report 16121705 (Version 1)
Quarter: 2019Q1

REPORT INFORMATION
  Report Type: Spontaneous
  Country: IT (occurrence: IT)
  Receive Date: 20190327
  Receipt Date: 20190327
  Transmission Date: 20190418
  Serious: Yes (Hospitalization)
  Sender: FDA-Public Use
  Company Number: IT-AXELLIA-002362

PATIENT
  Age: 75 Year
  Sex: Male

DRUGS (3)
  1. ENOXAPARIN [Concomitant]
     Active Substance: ENOXAPARIN
     Indication: ATRIAL FIBRILLATION
     Route: 058
  2. BISOPROLOL [Concomitant]
     Active Substance: BISOPROLOL
     Indication: HYPERTENSION
     Route: 048
  3. DAPTOMYCIN. [Suspect]
     Active Substance: DAPTOMYCIN
     Indication: DIABETIC FOOT INFECTION
     Route: 042
     Dates: start: 20190204, end: 20190205

REACTIONS (1)
  - Delusion [Recovered/Resolved]

NARRATIVE: CASE EVENT DATE: 20190205
